FAERS Safety Report 10158310 (Version 1)
Quarter: 2014Q2

REPORT INFORMATION
  Report Type: Spontaneous
  Country: US (occurrence: US)
  Receive Date: 20140507
  Receipt Date: 20140507
  Transmission Date: 20141212
  Serious: Yes (Hospitalization, Other)
  Sender: FDA-Public Use
  Company Number: US-ASTRAZENECA-2014SE29720

PATIENT
  Age: 49 Year
  Sex: Female
  Weight: 140.2 kg

DRUGS (23)
  1. LISINOPRIL [Suspect]
     Indication: BLOOD PRESSURE ABNORMAL
     Route: 048
  2. SEROQUEL [Suspect]
     Indication: BIPOLAR I DISORDER
     Route: 048
     Dates: end: 201404
  3. SEROQUEL [Suspect]
     Indication: POST-TRAUMATIC STRESS DISORDER
     Route: 048
     Dates: end: 201404
  4. SEROQUEL [Suspect]
     Indication: BIPOLAR I DISORDER
     Dosage: 200 MG DAILY, GENERIC
     Route: 048
     Dates: start: 20140401
  5. SEROQUEL [Suspect]
     Indication: POST-TRAUMATIC STRESS DISORDER
     Dosage: 200 MG DAILY, GENERIC
     Route: 048
     Dates: start: 20140401
  6. SEROQUEL [Suspect]
     Indication: BIPOLAR I DISORDER
     Route: 048
  7. SEROQUEL [Suspect]
     Indication: POST-TRAUMATIC STRESS DISORDER
     Route: 048
  8. SEROQUEL [Suspect]
     Indication: BIPOLAR I DISORDER
     Route: 048
  9. SEROQUEL [Suspect]
     Indication: POST-TRAUMATIC STRESS DISORDER
     Route: 048
  10. GABAPENTIN [Concomitant]
     Indication: NEUROPATHY PERIPHERAL
     Route: 048
  11. RANITIDINE [Concomitant]
     Indication: GASTROOESOPHAGEAL REFLUX DISEASE
     Route: 048
     Dates: start: 20140425
  12. CLOPIDOGREL [Concomitant]
     Indication: CARDIAC DISORDER
     Route: 048
     Dates: start: 20140405
  13. CARVEDILOL [Concomitant]
     Indication: CARDIAC DISORDER
     Route: 048
     Dates: start: 20140410
  14. CITALOPRAM [Concomitant]
     Indication: ANXIETY
     Route: 048
     Dates: start: 20131016
  15. PRIVASTATIN [Concomitant]
     Indication: BLOOD CHOLESTEROL ABNORMAL
     Route: 048
     Dates: start: 20131113
  16. HYDROCODONE APAP [Concomitant]
     Indication: PAIN
     Dosage: 7.5MG 325 MG PRN
     Route: 048
     Dates: start: 201311
  17. CEPHELEXIN [Concomitant]
     Indication: INFECTION
     Route: 048
     Dates: start: 201404
  18. ASPIRIN [Concomitant]
     Indication: CARDIAC DISORDER
     Route: 048
     Dates: start: 201404
  19. TEMAZAPAM [Concomitant]
     Indication: SLEEP DISORDER
     Route: 048
  20. HIDROCHLOROT [Concomitant]
     Indication: DIURETIC THERAPY
     Route: 048
  21. SPIRONOLACT [Concomitant]
     Indication: DIURETIC THERAPY
     Route: 048
     Dates: start: 20140410
  22. FAPHRIS [Concomitant]
     Indication: SLEEP DISORDER
     Route: 048
     Dates: start: 2010
  23. INSULIN [Concomitant]
     Indication: DIABETES MELLITUS
     Dosage: NR NR

REACTIONS (8)
  - Ankle fracture [Unknown]
  - Myocardial infarction [Unknown]
  - Dyskinesia [Unknown]
  - Muscular weakness [Unknown]
  - Dysarthria [Unknown]
  - Visual impairment [Unknown]
  - White blood cell count increased [Unknown]
  - Pain [Unknown]
